FAERS Safety Report 19157663 (Version 2)
Quarter: 2021Q2

REPORT INFORMATION
  Report Type: Spontaneous
  Country: GB (occurrence: GB)
  Receive Date: 20210420
  Receipt Date: 20210507
  Transmission Date: 20210717
  Serious: Yes (Life-Threatening, Hospitalization, Other)
  Sender: FDA-Public Use
  Company Number: GB-TEVA-2021-GB-1901652

PATIENT
  Age: 70 Year
  Sex: Female
  Weight: 50 kg

DRUGS (15)
  1. COCODAMOL [Suspect]
     Active Substance: ACETAMINOPHEN\CODEINE PHOSPHATE
     Indication: PAIN
     Dosage: 30/500MG TABS 1?2 TABLETS UP TO FOUR TIMES A DAY A REQUIRED PO
     Route: 048
  2. DEXAMETHASONE. [Suspect]
     Active Substance: DEXAMETHASONE
     Indication: VOMITING
     Route: 065
  3. OMEPRAZOLE. [Suspect]
     Active Substance: OMEPRAZOLE
     Indication: GASTROOESOPHAGEAL REFLUX DISEASE
     Dosage: NOT KNOWN? LIKELY 20MG ONCE A DAY PO(OTC)?AFTER 19FEB2021
     Route: 048
     Dates: start: 20210219
  4. PACLITAXEL. [Suspect]
     Active Substance: PACLITAXEL
     Indication: ENDOMETRIAL CANCER
     Dosage: 270 MG
     Route: 065
     Dates: start: 20210219
  5. CYCLIZINE [Suspect]
     Active Substance: CYCLIZINE
     Indication: NAUSEA
     Dosage: UPTO 3 TIMES A DAY AS REQUIRED, 50 MG
     Route: 048
     Dates: start: 20210130
  6. ONDANSETRON [Suspect]
     Active Substance: ONDANSETRON
     Indication: NAUSEA
     Dosage: 16 MILLIGRAM DAILY;
     Route: 048
     Dates: start: 20210220, end: 20210221
  7. ONDANSETRON [Suspect]
     Active Substance: ONDANSETRON
     Indication: VOMITING
     Route: 065
  8. CARBOPLATIN. [Suspect]
     Active Substance: CARBOPLATIN
     Indication: ENDOMETRIAL CANCER
     Dosage: 560 ML
     Route: 065
     Dates: start: 20210219, end: 20210219
  9. CYCLIZINE [Suspect]
     Active Substance: CYCLIZINE
     Indication: VOMITING
  10. CO?AMOXICLAV [Concomitant]
     Active Substance: AMOXICILLIN\CLAVULANATE POTASSIUM
  11. DEXAMETHASONE. [Suspect]
     Active Substance: DEXAMETHASONE
     Indication: NAUSEA
     Dosage: 8 MILLIGRAM DAILY;
     Route: 048
     Dates: start: 20210220, end: 20210221
  12. BAXTER HEALTHCARE SODIUM CHLORIDE [Suspect]
     Active Substance: SODIUM CHLORIDE
     Indication: MEDICATION DILUTION
     Dosage: 295 ML?PL 08828/0034 SODIUM CHLORIDE 0.9% INTRAVENOUS INFUSION BP, 295 ML, GIVEN OVER 3 HOURS
     Route: 065
     Dates: start: 20210219
  13. LACTULOSE. [Suspect]
     Active Substance: LACTULOSE
     Indication: CONSTIPATION
     Dosage: 20 ML DAILY;
     Route: 048
  14. PHENYTOIN. [Suspect]
     Active Substance: PHENYTOIN
     Indication: EPILEPSY
     Dosage: 225 MILLIGRAM DAILY;
     Route: 048
  15. BAXTER HEALTHCARE GLUCOSE [Suspect]
     Active Substance: DEXTROSE
     Indication: MEDICATION DILUTION
     Dosage: 500 ML, GIVEN OVER 1HOUR
     Route: 065
     Dates: start: 20210219

REACTIONS (5)
  - Thrombocytopenia [Recovering/Resolving]
  - Vaginal haemorrhage [Recovered/Resolved]
  - Anaemia [Recovering/Resolving]
  - Neutropenia [Recovering/Resolving]
  - Pyrexia [Recovering/Resolving]

NARRATIVE: CASE EVENT DATE: 20210304
